FAERS Safety Report 7241147-4 (Version None)
Quarter: 2011Q1

REPORT INFORMATION
  Report Type: 
  Country: None (occurrence: None)
  Receive Date: 20110124
  Receipt Date: 20110119
  Transmission Date: 20110831
  Serious: Yes (Other)
  Sender: FDA-Public Use
  Company Number: FR-ROCHE-724031

PATIENT
  Sex: Female

DRUGS (5)
  1. ZOMETA [Suspect]
     Route: 042
     Dates: start: 20100618, end: 20100618
  2. AVASTIN [Suspect]
     Route: 042
     Dates: start: 20100618, end: 20100618
  3. TAXOTERE [Suspect]
     Dosage: STRENGTH: 20MG/ML
     Route: 042
     Dates: start: 20100618, end: 20100618
  4. MEDROL [Concomitant]
     Route: 048
     Dates: start: 20100617, end: 20100621
  5. TAXOTERE [Suspect]
     Route: 042
     Dates: start: 20100804

REACTIONS (2)
  - HAND-FOOT-AND-MOUTH DISEASE [None]
  - APHTHOUS STOMATITIS [None]
